FAERS Safety Report 8771415 (Version 3)
Quarter: 2012Q4

REPORT INFORMATION
  Report Type: 
  Country: RU (occurrence: RU)
  Receive Date: 20120905
  Receipt Date: 20120929
  Transmission Date: 20130627
  Serious: Yes (Death, Life-Threatening, Hospitalization)
  Sender: FDA-Public Use
  Company Number: RU-B.I. PHARMACEUTICALS,INC./RIDGEFIELD-2012-AP-00720AP

PATIENT
  Age: 75 Year
  Sex: Male

DRUGS (4)
  1. PRADAXA [Suspect]
     Indication: CEREBROVASCULAR ACCIDENT PROPHYLAXIS
     Dosage: 220 mg
     Route: 048
     Dates: start: 201202, end: 20120810
  2. PRADAXA [Suspect]
     Indication: ATRIAL FIBRILLATION
  3. CLEXANE [Suspect]
     Dosage: 80 mg
     Route: 058
     Dates: start: 20120810, end: 20120810
  4. LIPRIMAR [Concomitant]
     Indication: HYPERCHOLESTEROLAEMIA

REACTIONS (4)
  - Multi-organ failure [Fatal]
  - Embolic stroke [Not Recovered/Not Resolved]
  - Brain oedema [Not Recovered/Not Resolved]
  - Gastric ulcer [Not Recovered/Not Resolved]
